FAERS Safety Report 7400543-2 (Version None)
Quarter: 2011Q2

REPORT INFORMATION
  Report Type: 
  Country: None (occurrence: None)
  Receive Date: 20110407
  Receipt Date: 20110329
  Transmission Date: 20111010
  Serious: Yes (Disabling, Other)
  Sender: FDA-Public Use
  Company Number: US-JNJFOC-20100101510

PATIENT
  Sex: Male
  Weight: 195.05 kg

DRUGS (11)
  1. VITAMIN D [Concomitant]
  2. TRICOR [Concomitant]
     Route: 048
  3. METHOTREXATE [Concomitant]
     Indication: PSORIASIS
  4. LASIX [Concomitant]
  5. INSULIN [Concomitant]
  6. ORENCIA [Concomitant]
  7. ZETIA [Concomitant]
  8. STELARA [Suspect]
     Indication: PSORIATIC ARTHROPATHY
     Route: 058
  9. STELARA [Suspect]
     Route: 058
  10. STELARA [Suspect]
     Indication: PSORIASIS
     Route: 058
  11. STELARA [Suspect]
     Route: 058

REACTIONS (1)
  - VIITH NERVE PARALYSIS [None]
